FAERS Safety Report 4617671-7 (Version None)
Quarter: 2005Q1

REPORT INFORMATION
  Report Type: 
  Country: None (occurrence: None)
  Receive Date: 20050321
  Receipt Date: 20050307
  Transmission Date: 20050727
  Serious: Yes (Other)
  Sender: FDA-Public Use
  Company Number: 2005-00498

PATIENT
  Age: 20 Year
  Sex: Female

DRUGS (4)
  1. TUBERSOL [Suspect]
     Indication: TUBERCULIN TEST
     Dates: start: 20050214
  2. MOBIC [Concomitant]
  3. DARVOCET-N 100 [Concomitant]
  4. MULTI-VITAMIN [Concomitant]

REACTIONS (7)
  - BLISTER [None]
  - ERYTHEMA [None]
  - INDURATION [None]
  - LARYNGOSPASM [None]
  - RASH PAPULAR [None]
  - RASH PRURITIC [None]
  - WHEEZING [None]
